FAERS Safety Report 6204903-7 (Version None)
Quarter: 2009Q2

REPORT INFORMATION
  Report Type: 
  Country: None (occurrence: None)
  Receive Date: 20090526
  Receipt Date: 20090420
  Transmission Date: 20091009
  Serious: No
  Sender: FDA-Public Use
  Company Number: FPI-09-DES-0106

PATIENT
  Age: 9 Year
  Sex: Female
  Weight: 36 kg

DRUGS (4)
  1. DESMOPRESSIN ACETATE [Suspect]
     Indication: HYPOPITUITARISM
     Dosage: 0.05 UL, 2X/DAY
     Dates: start: 20080101
  2. SOMATROPIN [Suspect]
     Indication: HYPOPITUITARISM
     Dosage: 0.5 MG, 1X/DAY, SC
     Route: 058
     Dates: start: 20070503
  3. LEVOTHYROXINE SODIUM [Suspect]
     Dosage: 50 UG, 1X/DAY
     Dates: start: 20080101
  4. HYDROCORTISONE [Suspect]
     Dosage: 7.5  - 0 - 5MG, DAILY
     Dates: start: 20080101

REACTIONS (2)
  - NEOPLASM PROGRESSION [None]
  - SHUNT MALFUNCTION [None]
